FAERS Safety Report 12111017 (Version 1)
Quarter: 2016Q1

REPORT INFORMATION
  Report Type: Other
  Country: US (occurrence: US)
  Receive Date: 20160224
  Receipt Date: 20160224
  Transmission Date: 20160526
  Serious: Yes (Other)
  Sender: FDA-Public Use
  Company Number: US-COL_22108_2016

PATIENT
  Age: 78 Year
  Sex: Female

DRUGS (3)
  1. COUMADIN [Concomitant]
     Active Substance: WARFARIN SODIUM
     Dosage: NI/NI/
  2. SYNTHROID [Concomitant]
     Active Substance: LEVOTHYROXINE SODIUM
     Indication: HYPOTHYROIDISM
     Dosage: NI/NI/
  3. LADY SPEED STICK [Suspect]
     Active Substance: ALUMINUM ZIRCONIUM TETRACHLOROHYDREX GLY
     Indication: PRODUCT USED FOR UNKNOWN INDICATION
     Dosage: NI/EVERY NIGHT/
     Route: 061

REACTIONS (2)
  - Renal failure [Not Recovered/Not Resolved]
  - Anticoagulation drug level abnormal [Unknown]
